FAERS Safety Report 10553829 (Version 6)
Quarter: 2016Q2

REPORT INFORMATION
  Report Type: Report from Study
  Country: KR (occurrence: KR)
  Receive Date: 20141030
  Receipt Date: 20160512
  Transmission Date: 20160815
  Serious: Yes (Hospitalization)
  Sender: FDA-Public Use
  Company Number: KR-ROCHE-1479728

PATIENT
  Age: 79 Year
  Sex: Male
  Weight: 65 kg

DRUGS (31)
  1. MAGNESIUM OXIDE. [Concomitant]
     Active Substance: MAGNESIUM OXIDE
     Indication: CONSTIPATION
     Route: 048
     Dates: start: 20140707, end: 20141021
  2. CHOLINE ALFOSCERATE [Concomitant]
     Active Substance: CHOLINE ALFOSCERATE
     Dosage: INDICATION: PROHYLAXIS (STROKE/HYPERTENSION)
     Route: 048
     Dates: start: 2013, end: 20141021
  3. INDOBUFEN [Concomitant]
     Active Substance: INDOBUFEN
     Dosage: INDICATION: PROHYLAXIS (STROKE/HYPERTENSION)
     Route: 048
     Dates: start: 2013, end: 20141021
  4. CEFTRIAXONE. [Concomitant]
     Active Substance: CEFTRIAXONE
     Indication: PNEUMONIA
     Dosage: PROPHYLAXIS INFECTION
     Route: 042
     Dates: start: 20141022, end: 20141028
  5. PEONY ROOT [Concomitant]
     Indication: CONSTIPATION
     Dosage: EXTRACT POWDER
     Route: 048
     Dates: start: 20140803, end: 20141021
  6. DOCUSATE SODIUM. [Concomitant]
     Active Substance: DOCUSATE SODIUM
     Indication: CONSTIPATION
     Route: 048
     Dates: start: 20140803, end: 20141021
  7. MEGESTROL [Concomitant]
     Active Substance: MEGESTROL
     Indication: DECREASED APPETITE
     Route: 048
     Dates: start: 20140829, end: 20141015
  8. ALBUMIN [Concomitant]
     Active Substance: ALBUMIN HUMAN
     Indication: HYPOALBUMINAEMIA
     Route: 042
     Dates: start: 20141007, end: 20141007
  9. AZITHROMYCIN ANHYDROUS. [Concomitant]
     Active Substance: AZITHROMYCIN ANHYDROUS
     Indication: PNEUMONIA
     Dosage: INDICATION: PNEUMONIA, PROPHYLAXIS INFECTION
     Route: 048
     Dates: start: 20141022, end: 20141023
  10. SALBUTAMOL [Concomitant]
     Active Substance: ALBUTEROL
     Indication: DYSPNOEA
     Dosage: DOSE 500, UNIT: OTHER
     Route: 055
     Dates: start: 20141022, end: 20141022
  11. FUROSEMIDE. [Concomitant]
     Active Substance: FUROSEMIDE
     Indication: OEDEMA
     Route: 013
     Dates: start: 20141022, end: 20141022
  12. NORMAL SALINE [Concomitant]
     Active Substance: SODIUM CHLORIDE
     Indication: AZOTAEMIA
     Route: 042
     Dates: start: 20141022, end: 20141022
  13. DRIED FERROUS SULFATE [Concomitant]
     Indication: IRON DEFICIENCY ANAEMIA
     Route: 048
     Dates: start: 20140930
  14. CALCIUM PANTOTHENATE [Concomitant]
     Active Substance: CALCIUM PANTOTHENATE
     Indication: CONSTIPATION
     Route: 048
     Dates: start: 20140803, end: 20141021
  15. BLINDED PERTUZUMAB [Suspect]
     Active Substance: PERTUZUMAB
     Indication: HER-2 POSITIVE GASTRIC CANCER
     Dosage: MOST RECENT DOSE ON 08/OCT/2014
     Route: 042
     Dates: start: 20140704
  16. LACTULOSE. [Concomitant]
     Active Substance: LACTULOSE
     Indication: CONSTIPATION
     Route: 048
     Dates: start: 20140923, end: 20141021
  17. IPRATROPIUM [Concomitant]
     Active Substance: IPRATROPIUM
     Indication: DYSPNOEA
     Route: 055
     Dates: start: 20141022, end: 20141022
  18. CAPECITABINE. [Suspect]
     Active Substance: CAPECITABINE
     Indication: HER-2 POSITIVE GASTRIC CANCER
     Dosage: MOST RECENT DOSE ON 20/OCT/2014 (800MG)
     Route: 048
     Dates: start: 20140704
  19. PANTOPRAZOLE [Concomitant]
     Active Substance: PANTOPRAZOLE SODIUM
     Dosage: PROPHYLAXIS GASTIRC PROBLEM - INDICATION
     Route: 048
     Dates: start: 20140730
  20. RED BLOOD CELLS [Concomitant]
     Active Substance: HUMAN RED BLOOD CELL
     Indication: ANAEMIA
     Route: 042
     Dates: start: 20141007, end: 20141007
  21. ACETYLCYSTEIN [Concomitant]
     Active Substance: ACETYLCYSTEINE
     Dosage: PROPHYLAXIS CT AGENT SIDE EFFECT
     Route: 042
     Dates: start: 20141022, end: 20141023
  22. PYRIDOXINE HCL [Concomitant]
     Active Substance: PYRIDOXINE HYDROCHLORIDE
     Indication: CONSTIPATION
     Route: 048
     Dates: start: 20140803, end: 20141021
  23. CISPLATIN. [Suspect]
     Active Substance: CISPLATIN
     Indication: HER-2 POSITIVE GASTRIC CANCER
     Dosage: MOST RECENT DOSE ON 28/AUG/2014 (68 MG)
     Route: 042
     Dates: start: 20140704
  24. ITOPRIDE [Concomitant]
     Active Substance: ITOPRIDE
     Route: 048
     Dates: start: 20140730, end: 20141021
  25. ALMAGATE [Concomitant]
     Active Substance: ALMAGATE
     Route: 048
     Dates: start: 20140730, end: 20141021
  26. TRASTUZUMAB [Suspect]
     Active Substance: TRASTUZUMAB
     Indication: HER-2 POSITIVE GASTRIC CANCER
     Dosage: LOADING DOSE
     Route: 042
     Dates: start: 20140704, end: 20140704
  27. RED BLOOD CELLS [Concomitant]
     Active Substance: HUMAN RED BLOOD CELL
     Indication: IRON DEFICIENCY ANAEMIA
     Route: 042
     Dates: start: 20140923, end: 20140923
  28. BISACODYL. [Concomitant]
     Active Substance: BISACODYL
     Indication: CONSTIPATION
     Route: 048
     Dates: start: 20140803, end: 20141021
  29. TRASTUZUMAB [Suspect]
     Active Substance: TRASTUZUMAB
     Dosage: Q3S, MAINTAINANCE DOSE, MOST RECENT DOSE ON 08/OCT/2014
     Route: 042
  30. DEXTROSE. [Concomitant]
     Active Substance: DEXTROSE
     Indication: SUPPORTIVE CARE
     Route: 042
     Dates: start: 20141023, end: 20141028
  31. URSODESOXYCHOLIC ACID [Concomitant]
     Active Substance: URSODIOL
     Indication: CONSTIPATION
     Route: 048
     Dates: start: 20140803, end: 20141021

REACTIONS (2)
  - Cardiac failure [Recovered/Resolved]
  - Atrioventricular block complete [Recovered/Resolved]

NARRATIVE: CASE EVENT DATE: 20141020
